FAERS Safety Report 4431126-4 (Version None)
Quarter: 2004Q3

REPORT INFORMATION
  Report Type: 
  Country: None (occurrence: None)
  Receive Date: 20040817
  Receipt Date: 20040804
  Transmission Date: 20050211
  Serious: Yes (Hospitalization, Other)
  Sender: FDA-Public Use
  Company Number: 2004050770

PATIENT
  Age: 56 Year
  Sex: Female

DRUGS (11)
  1. LIPITOR [Suspect]
     Indication: HYPERLIPIDAEMIA
     Dosage: 10 MG (1 IN 1 D), ORAL
     Route: 048
     Dates: start: 20030821
  2. NIFEDIPINE [Concomitant]
  3. AURANOFIN [Concomitant]
  4. PREDNISOLONE [Concomitant]
  5. LOXOPROFEN SODIUM (LOXOPROFEN SODIUM) [Concomitant]
  6. MARZULENE S (LEVOGLUTAMIDE, SODIUM GUALEFNATE) [Concomitant]
  7. SPIRONOLACTONE [Concomitant]
  8. FUROSEMIDE [Concomitant]
  9. SODIUM CHLORIDE 0.9% [Concomitant]
  10. LIMETHASONE (DEXAMETHASONE PALMITATE, GLYCEROL, LECITHIN, SOYA OIL) [Concomitant]
  11. AROTINOLOL HYDROCHLORIDE (AROTINOLOL HYDROCHLORIDE) [Concomitant]

REACTIONS (7)
  - BLOOD CREATININE INCREASED [None]
  - BLOOD UREA INCREASED [None]
  - CREATINE PHOSPHOKINASE DECREASED [None]
  - DEPRESSED LEVEL OF CONSCIOUSNESS [None]
  - DIABETES MELLITUS [None]
  - RHABDOMYOLYSIS [None]
  - WEIGHT DECREASED [None]
